FAERS Safety Report 15558308 (Version 4)
Quarter: 2019Q1

REPORT INFORMATION
  Report Type: Report from Study
  Country: JP (occurrence: JP)
  Receive Date: 20181028
  Receipt Date: 20190118
  Transmission Date: 20190417
  Serious: Yes (Death, Hospitalization)
  Sender: FDA-Public Use
  Company Number: JP-B.I. PHARMACEUTICALS,INC./RIDGEFIELD-2018-NB-005579

PATIENT
  Age: 70 Year
  Sex: Female
  Weight: 41.6 kg

DRUGS (1)
  1. PRIZBIND [Suspect]
     Active Substance: IDARUCIZUMAB
     Indication: PROCOAGULANT THERAPY
     Route: 042
     Dates: start: 20180930, end: 20180930

REACTIONS (3)
  - Cerebral infarction [Fatal]
  - Brain oedema [Fatal]
  - Haemorrhagic infarction [Fatal]

NARRATIVE: CASE EVENT DATE: 20180929
